FAERS Safety Report 13952456 (Version 1)
Quarter: 2017Q3

REPORT INFORMATION
  Report Type: Spontaneous
  Country: US (occurrence: US)
  Receive Date: 20170911
  Receipt Date: 20170911
  Transmission Date: 20171128
  Serious: Yes (Hospitalization)
  Sender: FDA-Public Use
  Company Number: US-TEVA-732067USA

PATIENT
  Age: 76 Year
  Sex: Female
  Weight: 66 kg

DRUGS (1)
  1. FENTANYL. [Suspect]
     Active Substance: FENTANYL
     Indication: PAIN
     Route: 062
     Dates: start: 20170117, end: 20170117

REACTIONS (7)
  - Dyspnoea [Recovered/Resolved]
  - Disorganised speech [Unknown]
  - Amnesia [Unknown]
  - Syncope [Unknown]
  - Dysphagia [Recovered/Resolved]
  - Dyspnoea [Unknown]
  - Confusional state [Unknown]

NARRATIVE: CASE EVENT DATE: 20170117
